FAERS Safety Report 6771379-0 (Version None)
Quarter: 2010Q2

REPORT INFORMATION
  Report Type: 
  Country: None (occurrence: None)
  Receive Date: 20100616
  Receipt Date: 20100607
  Transmission Date: 20101027
  Serious: Yes (Hospitalization)
  Sender: FDA-Public Use
  Company Number: TR-BAXTER-2010BH015311

PATIENT
  Age: 11 Year
  Sex: Male
  Weight: 26 kg

DRUGS (1)
  1. FEIBA VH IMMUNO [Suspect]
     Indication: PROPHYLAXIS
     Route: 065
     Dates: start: 20091117, end: 20100503

REACTIONS (12)
  - EYE SWELLING [None]
  - HEADACHE [None]
  - HYPERAEMIA [None]
  - INFUSION SITE RASH [None]
  - INFUSION SITE SWELLING [None]
  - LIP SWELLING [None]
  - OCULAR HYPERAEMIA [None]
  - PYREXIA [None]
  - SINUSITIS [None]
  - SWELLING FACE [None]
  - URTICARIA [None]
  - VOMITING [None]
